FAERS Safety Report 4897231-3 (Version None)
Quarter: 2005Q4

REPORT INFORMATION
  Report Type: 
  Country: None (occurrence: None)
  Receive Date: 20051223
  Receipt Date: 20051021
  Transmission Date: 20060501
  Serious: No
  Sender: FDA-Public Use
  Company Number: 05P-163-0314740-00

PATIENT
  Age: 53 Year
  Sex: Female
  Weight: 90.7194 kg

DRUGS (15)
  1. HUMIRA [Suspect]
     Indication: RHEUMATOID ARTHRITIS
     Dosage: 40 MG, 1 IN 2 WK, SUBCUTANEOUS
     Route: 058
     Dates: start: 20051021
  2. OXYCODONE HCL [Concomitant]
  3. VICODIN [Concomitant]
  4. METOPROLOL SUCCINATE [Concomitant]
  5. SPIRIVA [Concomitant]
  6. SUCRALFATE [Concomitant]
  7. ALPRAZOLAM [Concomitant]
  8. CYMBOLTA [Concomitant]
  9. QUETIAPINE [Concomitant]
  10. ESOMEPRAZOLE [Concomitant]
  11. CALCIUM CITRATE [Concomitant]
  12. CETRUCIL [Concomitant]
  13. LIDOCAINE [Concomitant]
  14. ACIDOPHILUS [Concomitant]
  15. GLUCOSAMINE [Concomitant]

REACTIONS (1)
  - PROCEDURAL COMPLICATION [None]
